FAERS Safety Report 8309164-0 (Version None)
Quarter: 2012Q2

REPORT INFORMATION
  Report Type: 
  Country: None (occurrence: None)
  Receive Date: 20120424
  Receipt Date: 20120413
  Transmission Date: 20120825
  Serious: Yes (Death)
  Sender: FDA-Public Use
  Company Number: TW-BAXTER-2012BAX001866

PATIENT
  Sex: Male

DRUGS (3)
  1. DIANEAL LOW CALCIUM WITH DEXTROSE 2.5% AND CALCIUM 2.5MEQ/L [Suspect]
     Route: 042
  2. DIANEAL LOW CALCIUM (2.5MEQ/L) PERITONEAL  DIALYSIS SOLUTION WITH 1.5% [Suspect]
     Route: 042
  3. BAXTER NUTRINEAL PD4 WITH 1.1% AMINO ACID [Suspect]
     Route: 033

REACTIONS (1)
  - CARDIOVASCULAR DISORDER [None]
